FAERS Safety Report 10583446 (Version 1)
Quarter: 2014Q4

REPORT INFORMATION
  Report Type: Spontaneous
  Country: JP (occurrence: None)
  Receive Date: 20141112
  Receipt Date: 20141112
  Transmission Date: 20150529
  Serious: Yes (Other)
  Sender: FDA-Public Use
  Company Number: 2014RN000059

PATIENT
  Age: 48 Year
  Sex: Male

DRUGS (2)
  1. ZOVIRAX [Suspect]
     Active Substance: ACYCLOVIR
     Indication: ENCEPHALITIS
     Route: 048
  2. MEROPENEM (MEROPENEM) [Concomitant]
     Active Substance: MEROPENEM

REACTIONS (10)
  - Altered state of consciousness [None]
  - Drug reaction with eosinophilia and systemic symptoms [None]
  - Headache [None]
  - Rash [None]
  - Eosinophil count increased [None]
  - Blood pressure decreased [None]
  - Liver disorder [None]
  - Pyrexia [None]
  - Renal disorder [None]
  - Seizure [None]
